FAERS Safety Report 16576425 (Version 1)
Quarter: 2019Q3

REPORT INFORMATION
  Report Type: Spontaneous
  Country: CA (occurrence: CA)
  Receive Date: 20190716
  Receipt Date: 20190716
  Transmission Date: 20191004
  Serious: Yes (Other)
  Sender: FDA-Public Use
  Company Number: CA-AUROBINDO-AUR-APL-2019-010654

PATIENT

DRUGS (20)
  1. MOXIFLOXACIN. [Interacting]
     Active Substance: MOXIFLOXACIN
     Indication: PULMONARY TUBERCULOSIS
     Dosage: 600 MILLIGRAM, ONCE A DAY
     Route: 065
  2. MOXIFLOXACIN. [Interacting]
     Active Substance: MOXIFLOXACIN
     Dosage: 9.2 MILLIGRAM
     Route: 065
  3. RIFAMPIN. [Interacting]
     Active Substance: RIFAMPIN
     Indication: PULMONARY TUBERCULOSIS
     Dosage: 750 MILLIGRAM
     Route: 065
  4. EMTRICITABINE [Concomitant]
     Active Substance: EMTRICITABINE
     Indication: HIV INFECTION
     Dosage: 200 MILLIGRAM
     Route: 065
  5. ETHAMBUTOL [Interacting]
     Active Substance: ETHAMBUTOL HYDROCHLORIDE
     Indication: PULMONARY TUBERCULOSIS
     Dosage: 1000 MILLIGRAM
     Route: 065
  6. TENOFOVIR [Concomitant]
     Active Substance: TENOFOVIR
     Indication: HIV INFECTION
     Dosage: 300 MILLIGRAM
     Route: 065
  7. EFAVIRENZ. [Interacting]
     Active Substance: EFAVIRENZ
     Dosage: 800 MILLIGRAM
     Route: 065
  8. ETHAMBUTOL [Interacting]
     Active Substance: ETHAMBUTOL HYDROCHLORIDE
     Dosage: 1400 MILLIGRAM, ONCE A DAY
     Route: 065
  9. EFAVIRENZ. [Interacting]
     Active Substance: EFAVIRENZ
     Dosage: 600 MILLIGRAM
     Route: 065
  10. MOXIFLOXACIN. [Interacting]
     Active Substance: MOXIFLOXACIN
     Dosage: 8.2 MILLIGRAM
     Route: 065
  11. ATRIPLA [Interacting]
     Active Substance: EFAVIRENZ\EMTRICITABINE\TENOFOVIR DISOPROXIL FUMARATE
     Indication: HIV INFECTION
     Dosage: 1 DOSAGE FORM, ONCE A DAY
     Route: 065
  12. ISONIAZID. [Interacting]
     Active Substance: ISONIAZID
     Indication: PULMONARY TUBERCULOSIS
     Dosage: 300 MILLIGRAM, ONCE A DAY
     Route: 065
  13. MOXIFLOXACIN. [Interacting]
     Active Substance: MOXIFLOXACIN
     Dosage: 800 MILLIGRAM
     Route: 065
  14. ETHAMBUTOL [Interacting]
     Active Substance: ETHAMBUTOL HYDROCHLORIDE
     Dosage: 1200 MILLIGRAM
     Route: 065
  15. EFAVIRENZ. [Suspect]
     Active Substance: EFAVIRENZ
     Indication: HIV INFECTION
     Dosage: 200 MILLIGRAM, ONCE A DAY
     Route: 065
  16. ETHAMBUTOL [Interacting]
     Active Substance: ETHAMBUTOL HYDROCHLORIDE
     Dosage: 1600 MILLIGRAM
     Route: 065
  17. ISONIAZID. [Interacting]
     Active Substance: ISONIAZID
     Dosage: 450 MILLIGRAM
     Route: 065
  18. PYRAZINAMIDE. [Interacting]
     Active Substance: PYRAZINAMIDE
     Indication: PULMONARY TUBERCULOSIS
     Dosage: 1800 MILLIGRAM, ONCE A DAY
     Route: 065
  19. RIFAMPIN. [Interacting]
     Active Substance: RIFAMPIN
     Dosage: 1500 MILLIGRAM
     Route: 065
  20. RIFAMPIN. [Interacting]
     Active Substance: RIFAMPIN
     Dosage: 600 MILLIGRAM, ONCE A DAY
     Route: 065

REACTIONS (3)
  - Drug level decreased [Recovering/Resolving]
  - Drug interaction [Recovering/Resolving]
  - Transaminases increased [Unknown]
